FAERS Safety Report 21952348 (Version 2)
Quarter: 2023Q1

REPORT INFORMATION
  Report Type: Spontaneous
  Country: FR (occurrence: FR)
  Receive Date: 20230203
  Receipt Date: 20230207
  Transmission Date: 20230418
  Serious: Yes (Other)
  Sender: FDA-Public Use
  Company Number: None

PATIENT
  Sex: Male

DRUGS (4)
  1. ESCITALOPRAM OXALATE [Suspect]
     Active Substance: ESCITALOPRAM OXALATE
     Indication: Exposure during pregnancy
     Dosage: 20 MG, QD
     Route: 064
  2. OXAZEPAM [Suspect]
     Active Substance: OXAZEPAM
     Indication: Exposure during pregnancy
     Dosage: 50 MG, QD
     Route: 064
  3. VERAPAMIL HYDROCHLORIDE [Suspect]
     Active Substance: VERAPAMIL HYDROCHLORIDE
     Indication: Exposure during pregnancy
     Dosage: 120 MG, Q12H
     Route: 064
  4. ARIPIPRAZOLE [Suspect]
     Active Substance: ARIPIPRAZOLE
     Indication: Exposure during pregnancy
     Dosage: 20 MG, QD
     Route: 064

REACTIONS (2)
  - Foetal growth restriction [Recovered/Resolved]
  - Pregnancy [Unknown]
